FAERS Safety Report 10595556 (Version 9)
Quarter: 2015Q3

REPORT INFORMATION
  Report Type: Report from Study
  Country: DE (occurrence: DE)
  Receive Date: 20141120
  Receipt Date: 20150917
  Transmission Date: 20151125
  Serious: Yes (Hospitalization, Disabling, Other)
  Sender: FDA-Public Use
  Company Number: PHHY2014DE149665

PATIENT
  Age: 48 Year
  Sex: Male
  Weight: 60 kg

DRUGS (14)
  1. AMPHOTERICIN B. [Suspect]
     Active Substance: AMPHOTERICIN B
     Indication: ORAL FUNGAL INFECTION
     Dosage: 100 MG, QID
     Route: 065
     Dates: start: 20140523
  2. AMPHO MORONAL [Concomitant]
     Indication: FUNGAL INFECTION
     Dosage: 100 MG, QID
     Route: 065
  3. IRENAT [Concomitant]
     Active Substance: POTASSIUM PERCHLORATE
     Indication: HYPOTHYROIDISM
     Dosage: 70 DRP, QD
     Route: 065
  4. ESOMEPRAZOLE [Concomitant]
     Active Substance: ESOMEPRAZOLE
     Indication: GASTROOESOPHAGEAL REFLUX DISEASE
     Dosage: 40 MG, QD
     Route: 048
  5. TRENTAL [Concomitant]
     Active Substance: PENTOXIFYLLINE
     Indication: HYPOTHYROIDISM
     Dosage: 20 DRP, TID
     Route: 065
  6. LDK378 [Suspect]
     Active Substance: CERITINIB
     Dosage: 750 MG, QD
     Route: 048
     Dates: start: 20141023, end: 20141117
  7. LDK378 [Suspect]
     Active Substance: CERITINIB
     Dosage: 600 MG, QD
     Route: 048
     Dates: end: 20150128
  8. FLUCONAZOLE. [Suspect]
     Active Substance: FLUCONAZOLE
     Indication: FUNGAL INFECTION
     Dosage: 200 MG, QD
     Route: 048
     Dates: start: 20130812, end: 20140323
  9. ESOMEPRAZOLE [Concomitant]
     Active Substance: ESOMEPRAZOLE
     Indication: PROPHYLAXIS
  10. LDK378 [Suspect]
     Active Substance: CERITINIB
     Dosage: 400 MG, QD
     Route: 048
     Dates: start: 20150312, end: 20150521
  11. DEXAMETASON [Concomitant]
     Active Substance: DEXAMETHASONE
     Indication: METASTASES TO CENTRAL NERVOUS SYSTEM
     Dosage: 1 MG, BID
     Route: 065
  12. NEXIUM I.V. [Concomitant]
     Active Substance: ESOMEPRAZOLE SODIUM
     Indication: GASTRIC ULCER
     Dosage: 40 MG, UNK
     Route: 065
  13. BISOPROLOL [Concomitant]
     Active Substance: BISOPROLOL
     Indication: TACHYCARDIA
     Dosage: 5 MG, UNK
     Route: 065
  14. LDK378 [Suspect]
     Active Substance: CERITINIB
     Indication: LUNG ADENOCARCINOMA
     Dosage: 750 MG, QD
     Route: 048
     Dates: start: 20140826, end: 20141022

REACTIONS (25)
  - Respiratory tract infection [Recovered/Resolved]
  - Staphylococcus test positive [Unknown]
  - Immune system disorder [Unknown]
  - Pneumonia [Unknown]
  - Liver abscess [Unknown]
  - Malignant pleural effusion [Unknown]
  - Joint swelling [Unknown]
  - Sepsis [Recovered/Resolved]
  - Gamma-glutamyltransferase increased [Unknown]
  - Blood alkaline phosphatase increased [Unknown]
  - Lung disorder [Recovered/Resolved]
  - Blood lactate dehydrogenase increased [Unknown]
  - Staphylococcal sepsis [Recovering/Resolving]
  - Staphylococcal infection [Unknown]
  - C-reactive protein increased [Unknown]
  - Pseudomonas test positive [Unknown]
  - Thrombosis [Recovered/Resolved]
  - Dyspnoea [Unknown]
  - Cholestasis [Unknown]
  - Liver disorder [Recovered/Resolved]
  - Hepatic function abnormal [Recovering/Resolving]
  - Alanine aminotransferase increased [Unknown]
  - Candida infection [Unknown]
  - Pyrexia [Unknown]
  - Pleural effusion [Unknown]

NARRATIVE: CASE EVENT DATE: 201410
